FAERS Safety Report 7806294-4 (Version None)
Quarter: 2011Q4

REPORT INFORMATION
  Report Type: 
  Country: None (occurrence: None)
  Receive Date: 20111011
  Receipt Date: 20111003
  Transmission Date: 20120403
  Serious: No
  Sender: FDA-Public Use
  Company Number: US-B.I. PHARMACEUTICALS,INC./RIDGEFIELD-2011-BP-04586BP

PATIENT
  Sex: Female

DRUGS (2)
  1. PRADAXA [Suspect]
     Indication: ATRIAL FIBRILLATION
     Dosage: 300 MG
     Route: 048
     Dates: start: 20110815, end: 20110824
  2. PRADAXA [Suspect]
     Route: 048
     Dates: start: 20110921

REACTIONS (3)
  - GASTRITIS EROSIVE [None]
  - DYSPEPSIA [None]
  - ORAL ADMINISTRATION COMPLICATION [None]
